FAERS Safety Report 7743434-X (Version None)
Quarter: 2011Q3

REPORT INFORMATION
  Report Type: 
  Country: None (occurrence: None)
  Receive Date: 20110912
  Receipt Date: 20110905
  Transmission Date: 20111222
  Serious: Yes (Other)
  Sender: FDA-Public Use
  Company Number: PHFR2011GB05199

PATIENT
  Age: 74 Year
  Sex: Male
  Weight: 80 kg

DRUGS (7)
  1. CALCIUM PHOSPHATE W/COLECALCIFEROL [Concomitant]
     Dosage: UNK UKN, UNK
     Route: 065
  2. RASAGILINE [Concomitant]
     Dosage: 1 MG, UNK
     Route: 065
  3. OMEPRAZOLE [Concomitant]
     Dosage: 20 MG, QD
     Route: 065
  4. PRAVASTATIN [Concomitant]
     Dosage: 20 MG, QD
     Route: 065
  5. STALEVO 100 [Concomitant]
     Dosage: 125 MG, 5QD
     Route: 065
  6. EXELON [Suspect]
     Indication: DEMENTIA
     Dosage: 4.6 MG, UNK
     Route: 062
     Dates: start: 20110708
  7. SOLIFENACIN SUCCINATE [Concomitant]
     Dosage: 10 MG, QD
     Route: 065

REACTIONS (1)
  - JAUNDICE [None]
